FAERS Safety Report 9493587 (Version 2)
Quarter: 2013Q3

REPORT INFORMATION
  Report Type: Spontaneous
  Country: US (occurrence: US)
  Receive Date: 20130902
  Receipt Date: 20130919
  Transmission Date: 20140515
  Serious: No
  Sender: FDA-Public Use
  Company Number: US-PFIZER INC-2013252347

PATIENT
  Age: 25 Year
  Sex: Female
  Weight: 50.79 kg

DRUGS (9)
  1. VENLAFAXINE HCL [Suspect]
     Indication: DEPRESSION
     Dosage: UNK
     Dates: start: 2008, end: 2008
  2. VERAPAMIL [Concomitant]
     Indication: HYPERTENSION
     Dosage: UNK
  3. CLONAZEPAM [Concomitant]
     Indication: SLEEP DISORDER
     Dosage: UNK
  4. CLONAZEPAM [Concomitant]
     Indication: ANXIETY
  5. XANAX [Concomitant]
     Indication: ANXIETY
     Dosage: UNK
  6. VITAMIN D [Concomitant]
     Dosage: UNK
  7. VITAMIN B [Concomitant]
     Dosage: UNK
  8. TRAZODONE [Concomitant]
     Indication: SLEEP DISORDER
     Dosage: UNK
  9. TRAZODONE [Concomitant]
     Indication: ANXIETY

REACTIONS (1)
  - Drug ineffective [Unknown]
